FAERS Safety Report 10050258 (Version 2)
Quarter: 2014Q2

REPORT INFORMATION
  Report Type: Spontaneous
  Country: CZ (occurrence: CZ)
  Receive Date: 20140401
  Receipt Date: 20140401
  Transmission Date: 20141212
  Serious: Yes (Other)
  Sender: FDA-Public Use
  Company Number: PHHY2014CZ033289

PATIENT
  Sex: Female

DRUGS (1)
  1. DEGAN [Suspect]
     Route: 051
     Dates: start: 201402, end: 201402

REACTIONS (3)
  - Torticollis [Recovered/Resolved]
  - Angioedema [Recovered/Resolved]
  - Product quality issue [Unknown]
